FAERS Safety Report 15946966 (Version 1)
Quarter: 2019Q1

REPORT INFORMATION
  Report Type: Spontaneous
  Country: US (occurrence: US)
  Receive Date: 20190211
  Receipt Date: 20190211
  Transmission Date: 20190417
  Serious: No
  Sender: FDA-Public Use
  Company Number: US-PFIZER INC-2019058527

PATIENT
  Age: 57 Year
  Sex: Female

DRUGS (2)
  1. ERYTHROMYCIN. [Suspect]
     Active Substance: ERYTHROMYCIN
     Dosage: UNK
  2. SULFUR. [Suspect]
     Active Substance: SULFUR
     Dosage: UNK

REACTIONS (1)
  - Drug hypersensitivity [Unknown]
